FAERS Safety Report 17634133 (Version 2)
Quarter: 2020Q4

REPORT INFORMATION
  Report Type: Spontaneous
  Country: FR (occurrence: FR)
  Receive Date: 20200406
  Receipt Date: 20201230
  Transmission Date: 20210113
  Serious: Yes (Other)
  Sender: FDA-Public Use
  Company Number: FR-PFIZER INC-2020136574

PATIENT
  Age: 58 Year
  Sex: Female
  Weight: 57 kg

DRUGS (3)
  1. ZAVEDOS [Suspect]
     Active Substance: IDARUBICIN
     Indication: ACUTE MYELOMONOCYTIC LEUKAEMIA
     Dosage: 15 MG, UNK
     Route: 042
     Dates: start: 20200130, end: 20200204
  2. CYTARABINE SANDOZ [Suspect]
     Active Substance: CYTARABINE
     Indication: ACUTE MYELOMONOCYTIC LEUKAEMIA
     Dosage: 330 MG, UNK
     Route: 041
     Dates: start: 20200130, end: 20200206
  3. CEFEPIME [Suspect]
     Active Substance: CEFEPIME HYDROCHLORIDE
     Dosage: UNK
     Route: 042
     Dates: start: 20200130, end: 20200202

REACTIONS (1)
  - Peripheral sensorimotor neuropathy [Not Recovered/Not Resolved]

NARRATIVE: CASE EVENT DATE: 20200131
